FAERS Safety Report 24280923 (Version 1)
Quarter: 2024Q3

REPORT INFORMATION
  Report Type: Spontaneous
  Country: TR (occurrence: TR)
  Receive Date: 20240904
  Receipt Date: 20240904
  Transmission Date: 20241017
  Serious: Yes (Other)
  Sender: ALKEM
  Company Number: TR-ALKEM LABORATORIES LIMITED-TR-ALKEM-2024-20416

PATIENT
  Age: 7 Year
  Sex: Male

DRUGS (6)
  1. CLOBAZAM [Interacting]
     Active Substance: CLOBAZAM
     Indication: Seizure
     Dosage: 10 MILLIGRAM, BID
     Route: 065
  2. CLOBAZAM [Interacting]
     Active Substance: CLOBAZAM
     Indication: Cerebral palsy
  3. LAMOTRIGINE [Interacting]
     Active Substance: LAMOTRIGINE
     Indication: Seizure
     Dosage: UNK
     Route: 065
  4. LAMOTRIGINE [Interacting]
     Active Substance: LAMOTRIGINE
     Indication: Cerebral palsy
  5. VALPROATE [Interacting]
     Active Substance: VALPROIC ACID
     Indication: Seizure
     Dosage: UNK
     Route: 065
  6. VALPROATE [Interacting]
     Active Substance: VALPROIC ACID
     Indication: Cerebral palsy

REACTIONS (2)
  - Drug interaction [Unknown]
  - Stevens-Johnson syndrome [Recovered/Resolved]
